FAERS Safety Report 4658569-8 (Version None)
Quarter: 2005Q2

REPORT INFORMATION
  Report Type: 
  Country: None (occurrence: None)
  Receive Date: 20050511
  Receipt Date: 20050503
  Transmission Date: 20051028
  Serious: Yes (Other)
  Sender: FDA-Public Use
  Company Number: PHFR2005GB01706

PATIENT
  Age: 67 Year
  Sex: Female

DRUGS (6)
  1. TERBINAFINE [Suspect]
     Indication: ONYCHOMYCOSIS
     Dosage: 250MG/DAY
     Route: 048
     Dates: start: 20050303, end: 20050418
  2. TACROLIMUS [Suspect]
     Indication: IMMUNOSUPPRESSION
     Dosage: 1.5 MG, BID
     Route: 048
     Dates: start: 20020101
  3. ENALAPRIL [Concomitant]
     Indication: HYPERTENSION
     Dosage: 5 MG/DAY
     Route: 048
     Dates: start: 20040601
  4. ATORVASTATIN CALCIUM [Concomitant]
     Indication: HYPERLIPIDAEMIA
     Dosage: 10MG/DAY
     Route: 048
     Dates: start: 20040201
  5. HUMALOG MIX [Concomitant]
     Indication: DIABETES MELLITUS
     Route: 058
     Dates: start: 20030601
  6. LANSOPRAZOLE [Concomitant]
     Indication: DYSPEPSIA
     Dosage: 30 MG/DAY
     Route: 048
     Dates: start: 20021001

REACTIONS (4)
  - BLOOD CREATININE INCREASED [None]
  - HYPERKALAEMIA [None]
  - NAUSEA [None]
  - RENAL FAILURE ACUTE [None]
